FAERS Safety Report 4961095-X (Version None)
Quarter: 2006Q1

REPORT INFORMATION
  Report Type: 
  Country: None (occurrence: None)
  Receive Date: 20060328
  Receipt Date: 20060310
  Transmission Date: 20060701
  Serious: Yes (Hospitalization, Disabling)
  Sender: FDA-Public Use
  Company Number: 408870

PATIENT
  Age: 33 Year
  Sex: Male
  Weight: 81.6 kg

DRUGS (2)
  1. ACCUTANE [Suspect]
     Indication: ACNE
     Dosage: 20 MG 2 PER DAY ORAL
     Route: 048
     Dates: start: 20010615, end: 20011115
  2. TYLENOL [Concomitant]

REACTIONS (49)
  - ANAEMIA [None]
  - ANHEDONIA [None]
  - ANXIETY [None]
  - ASTHENIA [None]
  - BACK PAIN [None]
  - BLOOD ALBUMIN DECREASED [None]
  - COAGULOPATHY [None]
  - COLITIS ULCERATIVE [None]
  - CONDITION AGGRAVATED [None]
  - CROHN'S DISEASE [None]
  - DRUG EFFECT DECREASED [None]
  - ECONOMIC PROBLEM [None]
  - EOSINOPHIL COUNT DECREASED [None]
  - EYE DISORDER [None]
  - FAECAL INCONTINENCE [None]
  - FATIGUE [None]
  - FEELING JITTERY [None]
  - GASTRIC DISORDER [None]
  - HAEMATOCRIT DECREASED [None]
  - HAEMOGLOBIN DECREASED [None]
  - HAEMORRHAGE [None]
  - HEPATIC STEATOSIS [None]
  - HYPOVOLAEMIA [None]
  - INFLAMMATORY BOWEL DISEASE [None]
  - INJURY [None]
  - INTESTINAL OBSTRUCTION [None]
  - LIVER FUNCTION TEST ABNORMAL [None]
  - LOWER RESPIRATORY TRACT INFECTION [None]
  - LYMPHOCYTE COUNT DECREASED [None]
  - MEAN CELL HAEMOGLOBIN CONCENTRATION DECREASED [None]
  - MICTURITION URGENCY [None]
  - NECK INJURY [None]
  - NEUTROPHIL COUNT INCREASED [None]
  - OESOPHAGEAL DISORDER [None]
  - PLATELET COUNT INCREASED [None]
  - PNEUMONIA [None]
  - POSTOPERATIVE WOUND INFECTION [None]
  - PROTEIN TOTAL DECREASED [None]
  - PSEUDOPOLYP [None]
  - PYREXIA [None]
  - RED BLOOD CELL SEDIMENTATION RATE INCREASED [None]
  - RETINOPATHY [None]
  - SCOTOMA [None]
  - SMALL INTESTINAL OBSTRUCTION [None]
  - SOMNOLENCE [None]
  - VISION BLURRED [None]
  - VISUAL ACUITY REDUCED [None]
  - VOMITING [None]
  - WEIGHT DECREASED [None]
